FAERS Safety Report 4694813-9 (Version None)
Quarter: 2005Q2

REPORT INFORMATION
  Report Type: 
  Country: None (occurrence: None)
  Receive Date: 20050617
  Receipt Date: 20050601
  Transmission Date: 20051028
  Serious: Yes (Disabling, Other)
  Sender: FDA-Public Use
  Company Number: DSA_26562_2005

PATIENT
  Sex: Male

DRUGS (3)
  1. ATIVAN [Suspect]
     Dosage: DF
  2. HALDOL [Suspect]
     Dosage: DF
  3. METOPROLOL [Suspect]
     Dosage: DF

REACTIONS (4)
  - CONFUSIONAL STATE [None]
  - CONVULSION [None]
  - NERVOUS SYSTEM DISORDER [None]
  - POST PROCEDURAL COMPLICATION [None]
